FAERS Safety Report 8510948-4 (Version None)
Quarter: 2012Q3

REPORT INFORMATION
  Report Type: 
  Country: None (occurrence: None)
  Receive Date: 20120716
  Receipt Date: 20120706
  Transmission Date: 20120928
  Serious: Yes (Hospitalization)
  Sender: FDA-Public Use
  Company Number: US-BAYER-2012-062481

PATIENT
  Age: 20 Year
  Sex: Female
  Weight: 68.027 kg

DRUGS (8)
  1. YAZ [Suspect]
     Indication: CONTRACEPTION
     Dosage: UNK
     Dates: start: 20090731, end: 20100519
  2. DROSPIRENONE AND ETHINYL ESTRADIOL [Suspect]
     Indication: CONTRACEPTION
     Dosage: UNK
     Dates: start: 20090131, end: 20090427
  3. DROSPIRENONE AND ETHINYL ESTRADIOL [Suspect]
     Dosage: UNK
     Dates: start: 20110601
  4. NAPROXEN [Concomitant]
     Indication: PAIN
     Dosage: 500 MG, 1 PILL 1 [TIME] DAILY
     Route: 048
     Dates: start: 20110601
  5. NITROFURANTOIN [Concomitant]
     Dosage: 100 MG, UNK
  6. DROSPIRENONE AND ETHINYL ESTRADIOL [Suspect]
     Indication: CONTRACEPTION
     Dosage: UNK
     Dates: start: 20100617, end: 20110601
  7. DROSPIRENONE AND ETHINYL ESTRADIOL [Suspect]
     Dosage: UNK
     Dates: start: 20101101, end: 20110301
  8. CYCLOBENZAPRINE [Concomitant]
     Indication: MUSCLE RELAXANT THERAPY
     Dosage: 5 MG, 1 PILL 1 [TIME] DAILY
     Route: 048
     Dates: start: 20110601

REACTIONS (3)
  - INJURY [None]
  - BACK PAIN [None]
  - PULMONARY EMBOLISM [None]
